FAERS Safety Report 21840346 (Version 1)
Quarter: 2023Q1

REPORT INFORMATION
  Report Type: Spontaneous
  Country: US (occurrence: US)
  Receive Date: 20230110
  Receipt Date: 20230110
  Transmission Date: 20230418
  Serious: Yes (Hospitalization)
  Sender: FDA-Public Use
  Company Number: US-UNITED THERAPEUTICS-UNT-2022-028606

PATIENT
  Sex: Female
  Weight: 114.29 kg

DRUGS (3)
  1. TYVASO DPI [Suspect]
     Active Substance: TREPROSTINIL
     Indication: Pulmonary arterial hypertension
     Dosage: 16 ?G, QID
     Dates: start: 20221120
  2. TYVASO DPI [Suspect]
     Active Substance: TREPROSTINIL
     Indication: Pulmonary arterial hypertension
     Dosage: UNK
  3. TYVASO DPI [Suspect]
     Active Substance: TREPROSTINIL
     Dosage: UNK

REACTIONS (8)
  - Chest pain [Recovered/Resolved]
  - Cough [Unknown]
  - Wheezing [Unknown]
  - Feeling cold [Unknown]
  - Dyspnoea [Unknown]
  - Peripheral coldness [Recovered/Resolved]
  - Hypoaesthesia [Recovered/Resolved]
  - Oral discomfort [Unknown]

NARRATIVE: CASE EVENT DATE: 20220101
